FAERS Safety Report 8162485-7 (Version None)
Quarter: 2012Q1

REPORT INFORMATION
  Report Type: 
  Country: None (occurrence: None)
  Receive Date: 20120224
  Receipt Date: 20120224
  Transmission Date: 20120608
  Serious: No
  Sender: FDA-Public Use
  Company Number: None

PATIENT
  Sex: Female
  Weight: 52 kg

DRUGS (1)
  1. CHLORAPREP WITH TINT [Suspect]
     Indication: THERAPEUTIC SKIN CARE TOPICAL
     Dates: start: 20111205, end: 20111205

REACTIONS (6)
  - EYE MOVEMENT DISORDER [None]
  - CORNEAL EPITHELIUM DEFECT [None]
  - CORNEAL OEDEMA [None]
  - EYE PAIN [None]
  - EYELID PAIN [None]
  - CORNEAL EXFOLIATION [None]
